FAERS Safety Report 7401458-6 (Version None)
Quarter: 2011Q2

REPORT INFORMATION
  Report Type: 
  Country: None (occurrence: None)
  Receive Date: 20110407
  Receipt Date: 20110329
  Transmission Date: 20111010
  Serious: Yes (Hospitalization)
  Sender: FDA-Public Use
  Company Number: US-MYLANLABS-2011S1005301

PATIENT
  Age: 61 Year
  Sex: Male

DRUGS (3)
  1. CLOZAPINE [Suspect]
     Indication: BIPOLAR I DISORDER
     Dates: start: 20110118, end: 20110308
  2. LISINOPRIL [Concomitant]
  3. DEPAKOTE ER [Concomitant]

REACTIONS (4)
  - GRANULOCYTOPENIA [None]
  - RENAL FAILURE [None]
  - DEHYDRATION [None]
  - ENTEROCOLITIS INFECTIOUS [None]
